FAERS Safety Report 15936611 (Version 1)
Quarter: 2019Q1

REPORT INFORMATION
  Report Type: Spontaneous
  Country: US (occurrence: US)
  Receive Date: 20190208
  Receipt Date: 20190208
  Transmission Date: 20190417
  Serious: Yes (Other)
  Sender: FDA-Public Use
  Company Number: US-GLAXOSMITHKLINE-US2019GSK020609

PATIENT
  Age: 74 Year
  Sex: Male

DRUGS (1)
  1. BREO ELLIPTA [Suspect]
     Active Substance: FLUTICASONE FUROATE\VILANTEROL TRIFENATATE
     Indication: PRODUCT USED FOR UNKNOWN INDICATION
     Dosage: UNK
     Route: 055
     Dates: start: 2015

REACTIONS (5)
  - Physiotherapy [Unknown]
  - Nerve compression [Unknown]
  - Hypoaesthesia [Unknown]
  - Accident [Unknown]
  - Spinal operation [Unknown]

NARRATIVE: CASE EVENT DATE: 20181027
